FAERS Safety Report 9514878 (Version 1)
Quarter: 2013Q1

REPORT INFORMATION
  Report Type: Spontaneous
  Country: US (occurrence: None)
  Receive Date: 20130305
  Receipt Date: 20130305
  Transmission Date: 20140127
  Serious: Yes (Hospitalization)
  Sender: FDA-Public Use
  Company Number: 163-21880-12112294

PATIENT
  Age: 68 Year
  Sex: Female
  Weight: 57.61 kg

DRUGS (1)
  1. REVLIMID [Suspect]
     Indication: PLASMA CELL MYELOMA
     Dates: start: 20120627

REACTIONS (2)
  - Pneumonia [None]
  - Blood potassium decreased [None]
